FAERS Safety Report 14815605 (Version 1)
Quarter: 2018Q2

REPORT INFORMATION
  Report Type: Spontaneous
  Country: US (occurrence: US)
  Receive Date: 20180417
  Receipt Date: 20180417
  Transmission Date: 20180711
  Serious: Yes (Hospitalization)
  Sender: FDA-Public Use
  Company Number: None

PATIENT
  Sex: Female

DRUGS (25)
  1. KCL [Concomitant]
     Active Substance: POTASSIUM CHLORIDE
  2. FA [Concomitant]
  3. PROAIR HFA [Concomitant]
     Active Substance: ALBUTEROL SULFATE
  4. EPIPEN [Concomitant]
     Active Substance: EPINEPHRINE
  5. MOUTH WASH [Concomitant]
  6. AQUORAL [Concomitant]
  7. CALCIUM [Concomitant]
     Active Substance: CALCIUM
  8. FISH OIL [Concomitant]
     Active Substance: FISH OIL
  9. MTX [Concomitant]
     Active Substance: METHOTREXATE SODIUM
  10. TORSEMIDE. [Concomitant]
     Active Substance: TORSEMIDE
  11. METOPROLOL. [Concomitant]
     Active Substance: METOPROLOL
  12. PREDNISONE. [Concomitant]
     Active Substance: PREDNISONE
  13. BREO ELLIPTA [Concomitant]
     Active Substance: FLUTICASONE FUROATE\VILANTEROL TRIFENATATE
  14. NYSTATIN. [Concomitant]
     Active Substance: NYSTATIN
  15. PANTOPRAZOLE [Concomitant]
     Active Substance: PANTOPRAZOLE
  16. ISOPTO CARP [Concomitant]
  17. ZOLPIDEM [Concomitant]
     Active Substance: ZOLPIDEM\ZOLPIDEM TARTRATE
  18. ACYCLOVIR. [Concomitant]
     Active Substance: ACYCLOVIR
  19. BUSPIRONE [Concomitant]
     Active Substance: BUSPIRONE HYDROCHLORIDE
  20. HUMIRA [Suspect]
     Active Substance: ADALIMUMAB
     Indication: RHEUMATOID ARTHRITIS
     Route: 058
     Dates: start: 20170505
  21. LORAZEPAM. [Concomitant]
     Active Substance: LORAZEPAM
  22. ESTRACE [Concomitant]
     Active Substance: ESTRADIOL
  23. FLUCONAZOLE. [Concomitant]
     Active Substance: FLUCONAZOLE
  24. RIZATRIPTAN. [Concomitant]
     Active Substance: RIZATRIPTAN
  25. TRIAMT/HCTZ [Concomitant]
     Active Substance: HYDROCHLOROTHIAZIDE\TRIAMTERENE

REACTIONS (3)
  - Surgery [None]
  - Pain [None]
  - Inflammation [None]

NARRATIVE: CASE EVENT DATE: 2018
